FAERS Safety Report 9189810 (Version 2)
Quarter: 2013Q2

REPORT INFORMATION
  Report Type: Spontaneous
  Country: AU (occurrence: AU)
  Receive Date: 20130326
  Receipt Date: 20130502
  Transmission Date: 20140414
  Serious: Yes (Other)
  Sender: FDA-Public Use
  Company Number: AU-PFIZER INC-2013094789

PATIENT
  Age: 58 Year
  Sex: Male
  Weight: 117 kg

DRUGS (17)
  1. LYRICA [Suspect]
     Indication: NEURALGIA
     Dosage: 75 MG ONCE DAILY AT NIGHT
     Route: 048
  2. LYRICA [Suspect]
     Indication: BACK PAIN
  3. DUROGESIC [Concomitant]
     Indication: PAIN
     Dosage: 25 MG, 2X/DAY
     Route: 061
  4. CELEBREX [Concomitant]
     Indication: SENILE ANKYLOSING VERTEBRAL HYPEROSTOSIS
     Dosage: 200 DF, UNK
  5. LEXAPRO [Concomitant]
     Indication: DEPRESSION
     Dosage: 30 MG, UNK
  6. LEXAPRO [Concomitant]
     Indication: STRESS
  7. LEXAPRO [Concomitant]
     Indication: PAIN
  8. NEXIUM [Concomitant]
     Indication: REFLUX GASTRITIS
     Dosage: 40 MG, UNK
  9. PANADEINE FORTE [Concomitant]
  10. SOTALOL [Concomitant]
     Indication: TACHYCARDIA
     Dosage: 40 MG, 2X/DAY
  11. THYROXINE [Concomitant]
     Dosage: 75 MG, 2X/DAY
  12. TWYNSTA [Concomitant]
     Indication: HYPERTENSION
     Dosage: 5MG/80MG
  13. VALPRO [Concomitant]
     Indication: AFFECTIVE DISORDER
     Dosage: 200 MG, 3X/DAY
  14. VALPRO [Concomitant]
     Indication: BACK PAIN
  15. VYTORIN [Concomitant]
     Indication: BLOOD CHOLESTEROL ABNORMAL
  16. VENTOLIN [Concomitant]
     Indication: ASTHMA
  17. DIAZEPAM [Concomitant]
     Indication: ANXIETY
     Dosage: 5 MG, AS NEEDED

REACTIONS (5)
  - Hallucination [Recovered/Resolved]
  - Dysstasia [Recovered/Resolved]
  - Activities of daily living impaired [Recovered/Resolved]
  - Dizziness [Recovered/Resolved]
  - Somnolence [Recovered/Resolved]
